FAERS Safety Report 8037513-X (Version None)
Quarter: 2012Q1

REPORT INFORMATION
  Report Type: 
  Country: None (occurrence: None)
  Receive Date: 20120111
  Receipt Date: 20111229
  Transmission Date: 20120608
  Serious: Yes (Other)
  Sender: FDA-Public Use
  Company Number: IT-ROCHE-1027581

PATIENT
  Age: 23 Year
  Sex: Male

DRUGS (1)
  1. ISOTRETINOIN [Suspect]
     Indication: ACNE

REACTIONS (2)
  - OBSESSIVE-COMPULSIVE DISORDER [None]
  - BIPOLAR DISORDER [None]
